FAERS Safety Report 4557607-0 (Version None)
Quarter: 2005Q1

REPORT INFORMATION
  Report Type: 
  Country: None (occurrence: None)
  Receive Date: 20050118
  Receipt Date: 20050106
  Transmission Date: 20050727
  Serious: Yes (Disabling, Other)
  Sender: FDA-Public Use
  Company Number: 2004-10-1012

PATIENT
  Sex: Female

DRUGS (1)
  1. CLARITIN [Suspect]
     Indication: HYPERSENSITIVITY
     Dosage: ORAL
     Route: 048
     Dates: start: 20020701

REACTIONS (6)
  - ANXIETY [None]
  - DIABETES MELLITUS [None]
  - HEPATITIS A [None]
  - HEPATITIS C [None]
  - HEPATOTOXICITY [None]
  - PAIN [None]
